FAERS Safety Report 4408626-6 (Version None)
Quarter: 2004Q3

REPORT INFORMATION
  Report Type: 
  Country: None (occurrence: None)
  Receive Date: 20040723
  Receipt Date: 20040608
  Transmission Date: 20050211
  Serious: Yes (Hospitalization)
  Sender: FDA-Public Use
  Company Number: 200111084BFR

PATIENT
  Sex: Female

DRUGS (5)
  1. STALTOR (CERIVASTATIN) [Suspect]
     Indication: HYPERCHOLESTEROLAEMIA
     Dosage: 0.3 MG, TOTAL DAILY, ORAL
     Route: 048
     Dates: start: 19990101, end: 20010401
  2. PENTASA [Concomitant]
  3. VASTAREL [Concomitant]
  4. ISOPTIN [Concomitant]
  5. ASPEGIC 325 [Concomitant]

REACTIONS (7)
  - BILIARY CIRRHOSIS PRIMARY [None]
  - CHOLANGITIS SCLEROSING [None]
  - DYSPNOEA [None]
  - HEPATITIS [None]
  - HEPATOTOXICITY [None]
  - PAIN [None]
  - PANCREATITIS [None]
